FAERS Safety Report 11663137 (Version 1)
Quarter: 2015Q4

REPORT INFORMATION
  Report Type: Spontaneous
  Country: IT (occurrence: IT)
  Receive Date: 20151027
  Receipt Date: 20151027
  Transmission Date: 20160304
  Serious: Yes (Hospitalization)
  Sender: FDA-Public Use
  Company Number: IT-MEDA-2013090010

PATIENT
  Age: 45 Year
  Sex: Female

DRUGS (7)
  1. TELMISARTAN. [Concomitant]
     Active Substance: TELMISARTAN
     Indication: HYPERTENSION
  2. OMEPRAZOLE. [Concomitant]
     Active Substance: OMEPRAZOLE
     Indication: GASTRITIS PROPHYLAXIS
  3. EN [Suspect]
     Active Substance: DELORAZEPAM
     Route: 048
     Dates: start: 20130821, end: 20130821
  4. BISOPROLOL [Concomitant]
     Active Substance: BISOPROLOL
  5. OXYCONTIN [Suspect]
     Active Substance: OXYCODONE HYDROCHLORIDE
     Route: 048
     Dates: start: 20130821, end: 20130821
  6. DEPALGOS [Suspect]
     Active Substance: ACETAMINOPHEN\OXYCODONE HYDROCHLORIDE
     Route: 048
     Dates: start: 20130821, end: 20130821
  7. ZOLPIDEM [Suspect]
     Active Substance: ZOLPIDEM\ZOLPIDEM TARTRATE
     Route: 048
     Dates: start: 20130821, end: 20130821

REACTIONS (3)
  - Intentional overdose [Recovered/Resolved]
  - Coma [Recovered/Resolved]
  - Intentional product misuse [Recovered/Resolved]

NARRATIVE: CASE EVENT DATE: 20130821
